FAERS Safety Report 14150203 (Version 1)
Quarter: 2017Q4

REPORT INFORMATION
  Report Type: Spontaneous
  Country: US (occurrence: US)
  Receive Date: 20171101
  Receipt Date: 20171101
  Transmission Date: 20180321
  Serious: No
  Sender: FDA-Public Use
  Company Number: US-NOVOPROD-524861

PATIENT
  Age: 70 Year
  Sex: Female

DRUGS (3)
  1. VAGIFEM [Suspect]
     Active Substance: ESTRADIOL
     Dosage: 2 TAB, QW
     Route: 067
     Dates: end: 201611
  2. VAGIFEM [Suspect]
     Active Substance: ESTRADIOL
     Indication: LICHEN PLANUS
     Dosage: 2 TAB, QW
     Route: 067
  3. VAGIFEM [Suspect]
     Active Substance: ESTRADIOL
     Dosage: 3 TAB, QW
     Route: 067

REACTIONS (2)
  - Vaginal haemorrhage [Recovered/Resolved]
  - Vaginal discharge [Recovered/Resolved]
